FAERS Safety Report 13567156 (Version 1)
Quarter: 2017Q2

REPORT INFORMATION
  Report Type: Spontaneous
  Country: US (occurrence: US)
  Receive Date: 20170521
  Receipt Date: 20170521
  Transmission Date: 20170830
  Serious: Yes (Other)
  Sender: FDA-Public Use
  Company Number: None

PATIENT
  Age: 70 Year
  Sex: Female
  Weight: 58 kg

DRUGS (6)
  1. CITRACAL [Concomitant]
     Active Substance: CALCIUM CITRATE
  2. METOPROLOL ER SUCCINATE [Concomitant]
     Active Substance: METOPROLOL SUCCINATE
  3. VITAMIN B [Concomitant]
     Active Substance: VITAMIN B
  4. CENTRUM SILVER GENERAL VITAMIN [Concomitant]
  5. METHYLPREDNISOLONE. [Suspect]
     Active Substance: METHYLPREDNISOLONE
     Indication: BACK DISORDER
     Dosage: QUANTITY:21 TABLET(S);OTHER FREQUENCY:TAPERED;?
     Route: 048
     Dates: start: 20170503, end: 20170508
  6. VITAMIN D [Concomitant]
     Active Substance: CHOLECALCIFEROL

REACTIONS (3)
  - Nausea [None]
  - Drug ineffective [None]
  - Palpitations [None]

NARRATIVE: CASE EVENT DATE: 20170503
